FAERS Safety Report 24243567 (Version 1)
Quarter: 2024Q3

REPORT INFORMATION
  Report Type: Spontaneous
  Country: JP (occurrence: JP)
  Receive Date: 20240823
  Receipt Date: 20240823
  Transmission Date: 20241017
  Serious: Yes (Hospitalization, Other)
  Sender: AMGEN
  Company Number: JP-KYOWAKIRIN-2024KK019187

PATIENT
  Sex: Male

DRUGS (1)
  1. FILGRASTIM [Suspect]
     Active Substance: FILGRASTIM
     Indication: Product used for unknown indication
     Dosage: UNK
     Route: 058

REACTIONS (8)
  - Hallucination [Unknown]
  - Hallucination, auditory [Unknown]
  - Schizoaffective disorder [Unknown]
  - Bipolar disorder [Unknown]
  - Hospitalisation [Unknown]
  - Mania [Unknown]
  - White blood cell count decreased [Unknown]
  - Back pain [Unknown]
